FAERS Safety Report 6293632-X (Version None)
Quarter: 2009Q3

REPORT INFORMATION
  Report Type: 
  Country: None (occurrence: None)
  Receive Date: 20090729
  Receipt Date: 20090709
  Transmission Date: 20100115
  Serious: Yes (Other)
  Sender: FDA-Public Use
  Company Number: 2007JP005468

PATIENT
  Age: 37 Year
  Sex: Male

DRUGS (3)
  1. PROGRAF [Suspect]
     Indication: LIVER TRANSPLANT
     Dosage: ORAL
     Route: 048
     Dates: start: 20050401
  2. CORTICOSTEROIDS FORMULATION UNKNOWN [Concomitant]
  3. PEGINTERFERON ALFA-2B W/RIBAVIRIN (RIBAVIRIN,PEGINTERFERON ALFA-2B) FO [Concomitant]

REACTIONS (6)
  - CONDITION AGGRAVATED [None]
  - HAEMOGLOBIN DECREASED [None]
  - HEPATIC FAILURE [None]
  - HEPATITIS CHOLESTATIC [None]
  - PLATELET COUNT DECREASED [None]
  - RENAL FAILURE [None]
